FAERS Safety Report 8544872-8 (Version None)
Quarter: 2012Q3

REPORT INFORMATION
  Report Type: 
  Country: None (occurrence: None)
  Receive Date: 20120727
  Receipt Date: 20120718
  Transmission Date: 20120928
  Serious: Yes (Hospitalization)
  Sender: FDA-Public Use
  Company Number: US-ELI_LILLY_AND_COMPANY-US201207006020

PATIENT
  Sex: Female

DRUGS (6)
  1. FORTEO [Suspect]
     Indication: OSTEOPOROSIS
     Dosage: 20 U, QD
     Dates: start: 20111101, end: 20120706
  2. ASPIRIN [Concomitant]
     Dosage: UNK, UNKNOWN
  3. AMITRIPTYLINE HYDROCHLORIDE [Concomitant]
     Dosage: UNK, UNKNOWN
  4. SYNTHROID [Concomitant]
     Dosage: UNK, UNKNOWN
  5. PROPRANOLOL [Concomitant]
     Dosage: UNK, UNKNOWN
  6. BUSPIRONE HCL [Concomitant]
     Dosage: 5 MG, BID

REACTIONS (1)
  - NEPHROLITHIASIS [None]
